FAERS Safety Report 24109779 (Version 1)
Quarter: 2024Q3

REPORT INFORMATION
  Report Type: Spontaneous
  Country: US (occurrence: US)
  Receive Date: 20240718
  Receipt Date: 20240718
  Transmission Date: 20241017
  Serious: No
  Sender: PFIZER
  Company Number: US-PFIZER INC-202400217769

PATIENT
  Age: 68 Year
  Sex: Female
  Weight: 55.34 kg

DRUGS (2)
  1. IBRANCE [Suspect]
     Active Substance: PALBOCICLIB
     Indication: Breast cancer metastatic
     Dosage: 100 MG, 1X/DAY
     Route: 048
     Dates: start: 202406
  2. ELIQUIS [Concomitant]
     Active Substance: APIXABAN
     Indication: Blood disorder
     Dosage: 5 MG

REACTIONS (2)
  - Nausea [Unknown]
  - Malaise [Unknown]
